FAERS Safety Report 25118576 (Version 1)
Quarter: 2025Q1

REPORT INFORMATION
  Report Type: Spontaneous
  Country: US (occurrence: US)
  Receive Date: 20250325
  Receipt Date: 20250325
  Transmission Date: 20250409
  Serious: Yes (Other)
  Sender: ALEXION PHARMACEUTICALS
  Company Number: US-AstraZeneca-CH-00830198A

PATIENT

DRUGS (2)
  1. SYMBICORT [Suspect]
     Active Substance: BUDESONIDE\FORMOTEROL FUMARATE DIHYDRATE
     Indication: Asthma
     Route: 065
  2. BREZTRI [Suspect]
     Active Substance: BUDESONIDE\FORMOTEROL\GLYCOPYRROLATE
     Route: 065

REACTIONS (15)
  - Bronchiectasis [Unknown]
  - Pulmonary haemorrhage [Unknown]
  - Bacterial infection [Unknown]
  - Chronic obstructive pulmonary disease [Unknown]
  - Wheezing [Unknown]
  - Therapy cessation [Unknown]
  - Dyspnoea [Unknown]
  - Breath odour [Unknown]
  - Epistaxis [Unknown]
  - Inflammation [Unknown]
  - Haemorrhage [Recovered/Resolved]
  - Dysphonia [Unknown]
  - Speech disorder [Unknown]
  - Amnesia [Unknown]
  - Asthma [Unknown]
